FAERS Safety Report 14238686 (Version 1)
Quarter: 2017Q4

REPORT INFORMATION
  Report Type: Spontaneous
  Country: US (occurrence: None)
  Receive Date: 20171129
  Receipt Date: 20171129
  Transmission Date: 20180321
  Serious: Yes (Death)
  Sender: FDA-Public Use
  Company Number: None

PATIENT
  Age: 65 Year
  Sex: Male

DRUGS (1)
  1. LETAIRIS [Suspect]
     Active Substance: AMBRISENTAN
     Indication: PULMONARY ARTERIAL HYPERTENSION
     Route: 048
     Dates: start: 20111228, end: 20171124

REACTIONS (5)
  - Scleroderma [None]
  - Hypotension [None]
  - Cardio-respiratory arrest [None]
  - Biliary cirrhosis [None]
  - Gait disturbance [None]

NARRATIVE: CASE EVENT DATE: 20171124
